FAERS Safety Report 8819284 (Version 2)
Quarter: 2013Q1

REPORT INFORMATION
  Report Type: Spontaneous
  Country: GB (occurrence: None)
  Receive Date: 20121003
  Receipt Date: 20121025
  Transmission Date: 20140127
  Serious: Yes (Hospitalization)
  Sender: FDA-Public Use
  Company Number: VAL_00877_2012

PATIENT
  Age: 88 Year
  Sex: Male

DRUGS (8)
  1. METOPROLOL [Suspect]
     Indication: PRODUCT USED FOR UNKNOWN INDICATION
     Dosage: (DF)
     Dates: start: 20110510
  2. LCZ-696 [Suspect]
     Indication: CARDIAC FAILURE CHRONIC
     Dosage: (CODE NOT   BROKEN (REGIMEN #1))
     Route: 048
     Dates: start: 20101206
  3. CINNARIZINE [Concomitant]
  4. FLUOXETINE [Concomitant]
  5. GTN [Concomitant]
  6. SIMVASTATIN [Concomitant]
  7. WARFARIN [Concomitant]
  8. FUROSEMIDE [Concomitant]

REACTIONS (9)
  - Angina pectoris [None]
  - Hypotension [None]
  - Dyspnoea [None]
  - Dizziness [None]
  - Heart rate decreased [None]
  - Rales [None]
  - Cardiac failure [None]
  - Cardiac failure [None]
  - Disease progression [None]
